FAERS Safety Report 16696330 (Version 2)
Quarter: 2019Q3

REPORT INFORMATION
  Report Type: Spontaneous
  Country: US (occurrence: US)
  Receive Date: 20190813
  Receipt Date: 20190826
  Transmission Date: 20191004
  Serious: No
  Sender: FDA-Public Use
  Company Number: US-TEVA-2019-US-1090179

PATIENT
  Sex: Female

DRUGS (1)
  1. VERAPAMIL EXTENDED-RELEASE TEVA [Suspect]
     Active Substance: VERAPAMIL HYDROCHLORIDE
     Indication: HYPERTENSION
     Dosage: 480 MILLIGRAM DAILY;
     Route: 065

REACTIONS (2)
  - Wrong technique in product usage process [Unknown]
  - Therapeutic product effect incomplete [Unknown]
